FAERS Safety Report 13424320 (Version 1)
Quarter: 2017Q2

REPORT INFORMATION
  Report Type: Spontaneous
  Country: FR (occurrence: FR)
  Receive Date: 20170410
  Receipt Date: 20170410
  Transmission Date: 20170830
  Serious: Yes (Hospitalization)
  Sender: FDA-Public Use
  Company Number: FR-ELI_LILLY_AND_COMPANY-FR201703012760

PATIENT
  Sex: Female

DRUGS (1)
  1. ALIMTA [Suspect]
     Active Substance: PEMETREXED DISODIUM
     Indication: BRONCHIAL CARCINOMA
     Dosage: UNK, OTHER
     Route: 065
     Dates: start: 201608

REACTIONS (5)
  - Inflammation [Not Recovered/Not Resolved]
  - Pyrexia [Unknown]
  - Infection parasitic [Unknown]
  - Oedema peripheral [Unknown]
  - Varicophlebitis [Unknown]
